FAERS Safety Report 18673033 (Version 3)
Quarter: 2021Q1

REPORT INFORMATION
  Report Type: Report from Study
  Country: CA (occurrence: CA)
  Receive Date: 20201229
  Receipt Date: 20210120
  Transmission Date: 20210419
  Serious: Yes (Hospitalization, Other)
  Sender: FDA-Public Use
  Company Number: CA-TAKEDA-2020TUS059939

PATIENT
  Age: 68 Year
  Sex: Female

DRUGS (3)
  1. VEDOLIZUMAB [Suspect]
     Active Substance: VEDOLIZUMAB
     Indication: COLITIS ULCERATIVE
     Dosage: 300 MILLIGRAM
     Route: 042
     Dates: start: 20201211, end: 20201211
  2. ASACOL [Concomitant]
     Active Substance: MESALAMINE
     Dosage: 4.8 GRAM
     Route: 048
     Dates: start: 20201104
  3. SALOFALK [AMINOSALICYLIC ACID] [Concomitant]
     Active Substance: AMINOSALICYLIC ACID
     Dosage: 4 GRAM
     Route: 054
     Dates: start: 202011

REACTIONS (5)
  - Colitis ulcerative [Recovered/Resolved with Sequelae]
  - Poisoning deliberate [Recovered/Resolved with Sequelae]
  - Traumatic lung injury [Recovered/Resolved with Sequelae]
  - Asthenia [Unknown]
  - Large intestine perforation [Recovered/Resolved with Sequelae]
